FAERS Safety Report 20045064 (Version 2)
Quarter: 2021Q4

REPORT INFORMATION
  Report Type: Other
  Country: GB (occurrence: None)
  Receive Date: 20211108
  Receipt Date: 20211113
  Transmission Date: 20220303
  Serious: Yes (Other)
  Sender: FDA-Public Use
  Company Number: GB-ROCHE-2950467

PATIENT

DRUGS (4)
  1. PLACEBO [Suspect]
     Active Substance: UNSPECIFIED INGREDIENT
     Indication: Systemic lupus erythematosus
     Dosage: (WEEK 0), 2 WEEKS, AND 4 WEEKS AND THEN EVERY 4 WEEKS THROUGH 52 WEEKS
     Route: 065
     Dates: start: 20170202, end: 20190328
  2. RITUXIMAB [Suspect]
     Active Substance: RITUXIMAB
     Indication: Systemic lupus erythematosus
     Dosage: TWO DOSES
     Route: 041
  3. BELIMUMAB [Suspect]
     Active Substance: BELIMUMAB
     Indication: Systemic lupus erythematosus
     Dosage: ON DAY 0, WEEK 2, WEEK 4, AND AT 4-WEEK INTERVALS THEREAFTER UNTIL WEEK 52.
     Route: 042
     Dates: start: 20170202, end: 20190328
  4. PREDNISOLONE [Concomitant]
     Active Substance: PREDNISOLONE

REACTIONS (18)
  - Lower respiratory tract infection [Unknown]
  - Gastroenteritis [Unknown]
  - Pyelonephritis [Unknown]
  - Neutropenia [Unknown]
  - Sepsis [Unknown]
  - Soft tissue infection [Unknown]
  - Cardiac failure [Unknown]
  - Myocarditis [Unknown]
  - Generalised tonic-clonic seizure [Unknown]
  - Systemic lupus erythematosus [Unknown]
  - Arthritis [Unknown]
  - Pulmonary embolism [Unknown]
  - Deep vein thrombosis [Unknown]
  - Pleurisy [Unknown]
  - Acute kidney injury [Unknown]
  - Hypoaesthesia [Unknown]
  - Hypoglycaemia [Unknown]
  - Suicidal ideation [Unknown]
